FAERS Safety Report 18904223 (Version 1)
Quarter: 2021Q1

REPORT INFORMATION
  Report Type: Spontaneous
  Country: US (occurrence: US)
  Receive Date: 20210216
  Receipt Date: 20210216
  Transmission Date: 20210420
  Serious: No
  Sender: FDA-Public Use
  Company Number: None

PATIENT
  Sex: Female

DRUGS (1)
  1. AVONEX [Suspect]
     Active Substance: INTERFERON BETA-1A
     Indication: MULTIPLE SCLEROSIS
     Dosage: ?          OTHER STRENGTH:30 MCG;OTHER DOSE:30 MCG;?
     Route: 030
     Dates: start: 20140206

REACTIONS (3)
  - Gait disturbance [None]
  - Therapy interrupted [None]
  - Hypersensitivity [None]
